FAERS Safety Report 7198140-X (Version None)
Quarter: 2010Q4

REPORT INFORMATION
  Report Type: 
  Country: None (occurrence: None)
  Receive Date: 20101214
  Receipt Date: 20101201
  Transmission Date: 20110411
  Serious: Yes (Other)
  Sender: FDA-Public Use
  Company Number: MC201000331

PATIENT

DRUGS (2)
  1. ANGIOMAX [Suspect]
     Indication: PERCUTANEOUS CORONARY INTERVENTION
     Dates: start: 20100901, end: 20100901
  2. ANGIOMAX [Suspect]
     Indication: PERCUTANEOUS CORONARY INTERVENTION
     Dates: start: 20100901

REACTIONS (4)
  - COAGULATION TIME ABNORMAL [None]
  - CORONARY ARTERY OCCLUSION [None]
  - DRUG RESISTANCE [None]
  - THROMBOSIS IN DEVICE [None]
